FAERS Safety Report 14801489 (Version 1)
Quarter: 2018Q2

REPORT INFORMATION
  Report Type: Spontaneous
  Country: DE (occurrence: DE)
  Receive Date: 20180424
  Receipt Date: 20180424
  Transmission Date: 20180711
  Serious: Yes (Congenital Anomaly)
  Sender: FDA-Public Use
  Company Number: PHHY2018DE071024

PATIENT
  Age: 1 Day
  Sex: Male
  Weight: 3.26 kg

DRUGS (3)
  1. METHOTREXAT [Suspect]
     Active Substance: METHOTREXATE
     Indication: FOETAL EXPOSURE DURING PREGNANCY
     Dosage: MATERNAL DOSE: 15 MG, QD (15 [MG/D ]/ ONCE. RECEIVED MTX INSTEAD OF DALTEPARIN)
     Route: 064
     Dates: start: 20161022, end: 20161022
  2. FRAGMIN [Concomitant]
     Active Substance: DALTEPARIN SODIUM
     Indication: FOETAL EXPOSURE DURING PREGNANCY
     Dosage: MATERNAL DOSE: UNK
     Route: 064
  3. UTROGEST [Concomitant]
     Active Substance: PROGESTERONE
     Indication: FOETAL EXPOSURE DURING PREGNANCY
     Dosage: MATERNAL DOSE: 100 MG, QD
     Route: 064
     Dates: start: 20161022, end: 20161023

REACTIONS (2)
  - Foetal exposure during pregnancy [Unknown]
  - Anal atresia [Unknown]

NARRATIVE: CASE EVENT DATE: 20170606
